FAERS Safety Report 24409161 (Version 2)
Quarter: 2025Q3

REPORT INFORMATION
  Report Type: Spontaneous
  Country: CA (occurrence: CA)
  Receive Date: 20241008
  Receipt Date: 20250930
  Transmission Date: 20251021
  Serious: Yes (Hospitalization)
  Sender: CELLTRION
  Company Number: CA-CELLTRION INC.-2024CA008352

PATIENT

DRUGS (16)
  1. TRUXIMA [Suspect]
     Active Substance: RITUXIMAB-ABBS
     Indication: Anti-neutrophil cytoplasmic antibody positive vasculitis
     Route: 042
     Dates: start: 20240418
  2. TRUXIMA [Suspect]
     Active Substance: RITUXIMAB-ABBS
     Route: 042
     Dates: start: 20240418
  3. RISEDRONATE SODIUM [Concomitant]
     Active Substance: RISEDRONATE SODIUM
     Dosage: 1 TAB ONCE WEEKLY/BONES
  4. LINAGLIPTIN [Concomitant]
     Active Substance: LINAGLIPTIN
  5. PREDNISONE [Concomitant]
     Active Substance: PREDNISONE
  6. SULFATRIM [Concomitant]
     Active Substance: SULFAMETHOXAZOLE\TRIMETHOPRIM
     Indication: Antibiotic therapy
  7. TAMSULOSIN [Concomitant]
     Active Substance: TAMSULOSIN
  8. PANTOPRAZOLE [Concomitant]
     Active Substance: PANTOPRAZOLE
     Indication: Gastrooesophageal reflux disease
  9. ROSUVASTATIN [Concomitant]
     Active Substance: ROSUVASTATIN
     Indication: Blood cholesterol
  10. ASPIRIN [Concomitant]
     Active Substance: ASPIRIN
     Indication: Ischaemic heart disease prophylaxis
  11. VITAMIN B [Concomitant]
     Active Substance: VITAMIN B
  12. VIT D [VITAMIN D NOS] [Concomitant]
  13. TUMS [Concomitant]
     Active Substance: CALCIUM CARBONATE
     Indication: Blood calcium
  14. AMLODIPINE [Concomitant]
     Active Substance: AMLODIPINE BESYLATE
     Route: 048
  15. POTASSIUM [Concomitant]
     Active Substance: POTASSIUM
  16. POTASSIUM [Concomitant]
     Active Substance: POTASSIUM

REACTIONS (6)
  - Hospitalisation [Unknown]
  - Flatulence [Unknown]
  - Vomiting [Recovered/Resolved]
  - Abdominal discomfort [Unknown]
  - Chemotherapy [Unknown]
  - Off label use [Unknown]

NARRATIVE: CASE EVENT DATE: 20240101
